FAERS Safety Report 20738789 (Version 1)
Quarter: 2022Q2

REPORT INFORMATION
  Report Type: Spontaneous
  Country: US (occurrence: None)
  Receive Date: 20220422
  Receipt Date: 20220422
  Transmission Date: 20220720
  Serious: Yes (Hospitalization)
  Sender: FDA-Public Use
  Company Number: None

PATIENT
  Age: 42 Year
  Sex: Male
  Weight: 82.01 kg

DRUGS (7)
  1. ONCASPAR [Suspect]
     Active Substance: PEGASPARGASE
     Dates: end: 20180208
  2. CYTARABINE [Suspect]
     Active Substance: CYTARABINE
     Dates: end: 20180123
  3. DAUNORUBICIN [Concomitant]
     Active Substance: DAUNORUBICIN
     Dates: end: 20180212
  4. DEXAMETHASONE [Suspect]
     Active Substance: DEXAMETHASONE
     Dates: end: 20180813
  5. METHOTREXATE [Suspect]
     Active Substance: METHOTREXATE
     Dates: end: 20180205
  6. RITUXIMAB [Suspect]
     Active Substance: RITUXIMAB
     Dates: end: 20180813
  7. VINCRISTINE SULFATE [Suspect]
     Active Substance: VINCRISTINE SULFATE
     Dates: end: 20180212

REACTIONS (3)
  - Seizure [None]
  - Cerebral venous thrombosis [None]
  - Haemorrhagic cerebral infarction [None]

NARRATIVE: CASE EVENT DATE: 20180217
